FAERS Safety Report 9073132 (Version 1)
Quarter: 2013Q1

REPORT INFORMATION
  Report Type: Report from Study
  Country: US (occurrence: US)
  Receive Date: 20130129
  Receipt Date: 20130129
  Transmission Date: 20140127
  Serious: No
  Sender: FDA-Public Use
  Company Number: US-ABBOTT-12P-163-0936004-00

PATIENT
  Age: 41 Year
  Sex: Female

DRUGS (15)
  1. HUMIRA 40 MG/0.8 ML PEN [Suspect]
     Indication: RHEUMATOID ARTHRITIS
     Dates: start: 20120405
  2. METHOTREXATE [Concomitant]
     Indication: PRODUCT USED FOR UNKNOWN INDICATION
     Dosage: 5 TABS ONCE A WEEK
  3. HYDROQUINONE [Concomitant]
     Indication: RHEUMATOID ARTHRITIS
  4. FOLIC ACID [Concomitant]
     Indication: PRODUCT USED FOR UNKNOWN INDICATION
  5. NEXIUM [Concomitant]
     Indication: GASTROOESOPHAGEAL REFLUX DISEASE
  6. BACLOFEN [Concomitant]
     Indication: PRODUCT USED FOR UNKNOWN INDICATION
     Dosage: 10MG; 1/2 TAB 3 TIMES A DAY AND 1 WHOLE PILL AT BEDTIME
  7. OS CAL [Concomitant]
     Indication: PRODUCT USED FOR UNKNOWN INDICATION
     Dosage: WITH VITAMIN D
  8. VITAMIN D3 [Concomitant]
     Indication: PRODUCT USED FOR UNKNOWN INDICATION
  9. SYNTHROID [Concomitant]
     Indication: THYROID DISORDER
  10. LEVOTHYROXINE [Concomitant]
     Indication: THYROID DISORDER
     Dosage: PILLS
  11. PAROXETINE [Concomitant]
     Indication: DEPRESSION
  12. TRAZADONE [Concomitant]
     Indication: INSOMNIA
     Dosage: AT BEDTIME
  13. FERROUS GLUCONATE [Concomitant]
     Indication: ANAEMIA
  14. MORPHINE SULFATE [Concomitant]
     Indication: ARTHRALGIA
  15. STOOL SOFTENER [Concomitant]
     Indication: CONSTIPATION
     Dosage: AS NEEDED; ONCE A DAY

REACTIONS (1)
  - Injection site pain [Recovered/Resolved]
